FAERS Safety Report 4493626-0 (Version None)
Quarter: 2004Q3

REPORT INFORMATION
  Report Type: 
  Country: None (occurrence: None)
  Receive Date: 20040921
  Receipt Date: 20040116
  Transmission Date: 20050211
  Serious: Yes (Death, Hospitalization)
  Sender: FDA-Public Use
  Company Number: 163-20785-04010444

PATIENT
  Age: 60 Year
  Sex: Male
  Weight: 123 kg

DRUGS (13)
  1. THALOMID [Suspect]
     Indication: ACUTE MYELOID LEUKAEMIA
     Dosage: SEE IMAGE
     Route: 048
     Dates: start: 20030718, end: 20030728
  2. THALOMID [Suspect]
     Indication: ACUTE MYELOID LEUKAEMIA
     Dosage: SEE IMAGE
     Route: 048
     Dates: start: 20020729, end: 20030827
  3. FLUDARABINE PHOSPHATE [Suspect]
     Indication: ACUTE MYELOID LEUKAEMIA
     Dosage: 31 MG, DAILY
     Dates: start: 20030718, end: 20040722
  4. CARBOPLATIN [Suspect]
     Indication: ACUTE MYELOID LEUKAEMIA
     Dosage: 800 MG, DAILY
     Dates: start: 20030718, end: 20030722
  5. TOPOTECAN (TOPOTECAN) [Suspect]
     Indication: ACUTE MYELOID LEUKAEMIA
     Dosage: 1.8 MG, DAILY
     Dates: start: 20030723, end: 20030725
  6. METFORMIN HCL [Concomitant]
  7. PYRIDOXINE (PYRIDOXINE) [Concomitant]
  8. AMICAR [Concomitant]
  9. TYLENOL [Concomitant]
  10. KCL (POTASSIUM CHLORIDE) [Concomitant]
  11. COMPAZINE [Concomitant]
  12. CODEINE (CODEINE) [Concomitant]
  13. FLUCONAZOLE [Concomitant]

REACTIONS (16)
  - CHILLS [None]
  - CULTURE STOOL POSITIVE [None]
  - DEATH [None]
  - DEEP VEIN THROMBOSIS [None]
  - HYPERHIDROSIS [None]
  - HYPOTENSION [None]
  - HYPOTHERMIA [None]
  - HYPOXIA [None]
  - LABORATORY TEST ABNORMAL [None]
  - PLATELET COUNT DECREASED [None]
  - PNEUMONIA [None]
  - RENAL FAILURE [None]
  - RENAL TUBULAR NECROSIS [None]
  - RESPIRATORY DISTRESS [None]
  - SEPTIC SHOCK [None]
  - WHEEZING [None]
